FAERS Safety Report 18238384 (Version 6)
Quarter: 2021Q2

REPORT INFORMATION
  Report Type: Report from Study
  Country: None (occurrence: US)
  Receive Date: 20200907
  Receipt Date: 20210419
  Transmission Date: 20210717
  Serious: Yes (Hospitalization)
  Sender: FDA-Public Use
  Company Number: US-ABBVIE-20K-163-3554571-00

PATIENT
  Age: 72 Year
  Sex: Male
  Weight: 80.9 kg

DRUGS (23)
  1. HUMALOG MIX50/50 [Concomitant]
     Active Substance: INSULIN LISPRO
     Indication: TYPE 2 DIABETES MELLITUS
     Dosage: 50?50 MIX PEN
     Route: 058
  2. IRBESARTAN AND HYDROCHLOROTHIAZIDE [Concomitant]
     Active Substance: HYDROCHLOROTHIAZIDE\IRBESARTAN
     Indication: HYPERTENSION
  3. VALACICLOVIR [Concomitant]
     Active Substance: VALACYCLOVIR HYDROCHLORIDE
     Indication: ORAL HERPES
     Dosage: PRN
     Route: 048
  4. HUMALOG MIX75/25 [Concomitant]
     Active Substance: INSULIN LISPRO
     Route: 058
  5. SELENIUM [Concomitant]
     Active Substance: SELENIUM
     Indication: VITAMIN SUPPLEMENTATION
     Route: 048
  6. DILTIAZEM. [Concomitant]
     Active Substance: DILTIAZEM
     Indication: ATRIAL FIBRILLATION
     Route: 048
  7. FUROSEMIDE. [Concomitant]
     Active Substance: FUROSEMIDE
     Indication: FLUID RETENTION
     Dosage: 20 MG PO DAILY
     Route: 048
  8. CEPHALEXIN. [Concomitant]
     Active Substance: CEPHALEXIN
     Indication: PRODUCT USED FOR UNKNOWN INDICATION
     Dosage: 500 MH PO O6H DAILY
  9. COMBIGAN [Concomitant]
     Active Substance: BRIMONIDINE TARTRATE\TIMOLOL MALEATE
     Indication: OCULAR DISCOMFORT
     Dosage: 2 DROPS, BOTH EYES DAILY
  10. HUMALOG MIX50/50 [Concomitant]
     Active Substance: INSULIN LISPRO
     Route: 058
  11. APIXABAN [Concomitant]
     Active Substance: APIXABAN
     Indication: ATRIAL FIBRILLATION
     Route: 048
  12. TAMSULOSIN [Concomitant]
     Active Substance: TAMSULOSIN
     Indication: URINARY RETENTION
     Dosage: 0.4 MG PO DAILY
  13. FINASTERIDE. [Concomitant]
     Active Substance: FINASTERIDE
     Indication: URINARY RETENTION
     Dosage: 5 MG PO DAILY
  14. SIMVASTATIN. [Concomitant]
     Active Substance: SIMVASTATIN
     Indication: BLOOD CHOLESTEROL INCREASED
     Route: 048
  15. ZINC. [Concomitant]
     Active Substance: ZINC
     Indication: VITAMIN SUPPLEMENTATION
     Route: 048
  16. IMBRUVICA [Suspect]
     Active Substance: IBRUTINIB
     Indication: CHRONIC LYMPHOCYTIC LEUKAEMIA
     Route: 048
     Dates: start: 20180818
  17. LOTEMAX [Concomitant]
     Active Substance: LOTEPREDNOL ETABONATE
     Indication: DRY EYE
     Dosage: 1 DROP EYES DAILY
  18. ASPIRIN 81 [Concomitant]
     Active Substance: ASPIRIN
     Indication: ATRIAL FIBRILLATION
     Route: 048
  19. POTASSIUM CHLORIDE. [Concomitant]
     Active Substance: POTASSIUM CHLORIDE
     Indication: PRODUCT USED FOR UNKNOWN INDICATION
     Dosage: 20 MEG PO DAILY
     Route: 048
  20. OLESARTAN [Concomitant]
     Indication: PRODUCT USED FOR UNKNOWN INDICATION
     Dosage: 40 MG PO DAILY
  21. HUMALOG MIX75/25 [Concomitant]
     Active Substance: INSULIN LISPRO
     Indication: TYPE 2 DIABETES MELLITUS
     Dosage: 75?25 MIX PEN
     Route: 058
  22. PIOGLITAZONE. [Concomitant]
     Active Substance: PIOGLITAZONE
     Indication: TYPE 2 DIABETES MELLITUS
     Route: 048
  23. METFORMIN [Concomitant]
     Active Substance: METFORMIN HYDROCHLORIDE
     Indication: TYPE 2 DIABETES MELLITUS
     Route: 048

REACTIONS (5)
  - Atrial fibrillation [Recovered/Resolved]
  - Anaemia [Recovered/Resolved]
  - Haematuria [Recovered/Resolved]
  - Urinary retention [Recovered/Resolved]
  - Urinary retention [Recovered/Resolved]

NARRATIVE: CASE EVENT DATE: 20200821
